FAERS Safety Report 16290665 (Version 1)
Quarter: 2019Q2

REPORT INFORMATION
  Report Type: Spontaneous
  Country: KZ (occurrence: KZ)
  Receive Date: 20190509
  Receipt Date: 20190509
  Transmission Date: 20190711
  Serious: Yes (Hospitalization, Other)
  Sender: FDA-Public Use
  Company Number: KZ-JNJFOC-20190509014

PATIENT
  Sex: Male

DRUGS (5)
  1. XARELTO [Suspect]
     Active Substance: RIVAROXABAN
     Indication: ATRIAL FIBRILLATION
     Route: 048
     Dates: start: 20181101, end: 20190420
  2. VEROSPIRON [Concomitant]
     Active Substance: SPIRONOLACTONE
     Route: 065
  3. TRIGRIM [Concomitant]
     Active Substance: TORSEMIDE
     Route: 065
  4. BISOPROLOL [Concomitant]
     Active Substance: BISOPROLOL
     Route: 065
  5. LISINOPRIL. [Concomitant]
     Active Substance: LISINOPRIL
     Route: 065

REACTIONS (8)
  - Hepatic cirrhosis [Unknown]
  - Cholecystitis [Unknown]
  - Blood bilirubin increased [Unknown]
  - Cardiomyopathy [Unknown]
  - Hypertension [Unknown]
  - Hepatitis [Unknown]
  - Cholelithiasis [Unknown]
  - Subcutaneous haematoma [Recovering/Resolving]

NARRATIVE: CASE EVENT DATE: 20190419
